FAERS Safety Report 8427458-5 (Version None)
Quarter: 2012Q2

REPORT INFORMATION
  Report Type: 
  Country: None (occurrence: None)
  Receive Date: 20120611
  Receipt Date: 20120605
  Transmission Date: 20120825
  Serious: Yes (Hospitalization, Other)
  Sender: FDA-Public Use
  Company Number: US-PFIZER INC-2012115728

PATIENT
  Sex: Male

DRUGS (15)
  1. NEURONTIN [Interacting]
     Dosage: UNK
  2. REMERON [Interacting]
     Indication: DEPRESSION
     Dosage: UNK
     Dates: start: 20100901, end: 20100901
  3. VISTARIL [Interacting]
     Dosage: UNK
     Dates: start: 20100901, end: 20100901
  4. NEURONTIN [Suspect]
     Indication: DEMENTIA WITH LEWY BODIES
     Dosage: 400 MG, 1X/DAY
     Dates: start: 20100907
  5. NEURONTIN [Interacting]
     Dosage: 100 MG, 2X/DAY
  6. NEURONTIN [Interacting]
     Dosage: 200 MG, 1X/DAY
     Dates: end: 20100901
  7. ACETYLSALICYLIC ACID SRT [Interacting]
     Indication: ANTICOAGULANT THERAPY
     Dosage: UNK
     Dates: start: 20100901, end: 20100901
  8. NEURONTIN [Interacting]
     Dosage: 300 MG, 3X/DAY
  9. TRAZODONE HCL [Interacting]
     Indication: DEPRESSION
     Dosage: UNK
     Dates: start: 20100901, end: 20100901
  10. LAMICTAL [Interacting]
     Indication: DEMENTIA WITH LEWY BODIES
     Dosage: UNK
     Dates: start: 20100901, end: 20100901
  11. NAMENDA [Interacting]
     Indication: DEMENTIA WITH LEWY BODIES
     Dosage: UNK
     Dates: start: 20100901, end: 20100901
  12. ACETAMINOPHEN [Concomitant]
     Indication: PAIN
     Dosage: UNK
  13. TEMAZEPAM [Interacting]
     Indication: SLEEP DISORDER
     Dosage: UNK
     Dates: start: 20100901, end: 20100901
  14. ATIVAN [Interacting]
     Dosage: UNK
     Dates: start: 20100901, end: 20100901
  15. EXELON [Interacting]
     Indication: DEMENTIA WITH LEWY BODIES
     Dosage: UNK
     Dates: start: 20100901, end: 20100901

REACTIONS (4)
  - NERVOUS SYSTEM DISORDER [None]
  - DRUG INTERACTION [None]
  - ABNORMAL BEHAVIOUR [None]
  - DEMENTIA WITH LEWY BODIES [None]
